FAERS Safety Report 4303503-3 (Version None)
Quarter: 2004Q1

REPORT INFORMATION
  Report Type: 
  Country: None (occurrence: None)
  Receive Date: 20040223
  Receipt Date: 20040211
  Transmission Date: 20041129
  Serious: Yes (Hospitalization)
  Sender: FDA-Public Use
  Company Number: 200402204

PATIENT
  Age: 58 Year
  Sex: Male

DRUGS (2)
  1. IMODIUM RX CAPSULES (LOPERAMIDE HC1 2 MG PER CAPSULE) [Suspect]
     Indication: PROPHYLAXIS
     Dosage: PO
     Route: 048
     Dates: start: 20031216, end: 20040101
  2. COLCHICINE [Suspect]
     Indication: REFLEX SYMPATHETIC DYSTROPHY
     Dosage: PO
     Route: 048
     Dates: start: 20031216, end: 20040101

REACTIONS (4)
  - DRUG INTERACTION [None]
  - GENERAL PHYSICAL HEALTH DETERIORATION [None]
  - PYREXIA [None]
  - TOXIC SKIN ERUPTION [None]
